FAERS Safety Report 8572453-9 (Version None)
Quarter: 2012Q2

REPORT INFORMATION
  Report Type: 
  Country: None (occurrence: None)
  Receive Date: 20120419
  Receipt Date: 20120419
  Transmission Date: 20120825
  Serious: Yes (Other)
  Sender: FDA-Public Use
  Company Number: ALL1-2011-01651

PATIENT
  Age: 26 Year
  Sex: Female

DRUGS (3)
  1. HUMIRA [Concomitant]
  2. REMICADE [Concomitant]
  3. LIALDA [Suspect]
     Indication: COLITIS ULCERATIVE
     Dosage: 3.6 G, 1XDAY:QD, ORAL
     Route: 048
     Dates: start: 20110101, end: 20110101

REACTIONS (1)
  - NEPHRITIS [None]
